FAERS Safety Report 10152288 (Version 1)
Quarter: 2014Q2

REPORT INFORMATION
  Report Type: Spontaneous
  Country: JP (occurrence: None)
  Receive Date: 20140501
  Receipt Date: 20140501
  Transmission Date: 20141212
  Serious: Yes (Hospitalization)
  Sender: FDA-Public Use
  Company Number: 2014JP00412

PATIENT
  Age: 59 Year
  Sex: Female

DRUGS (3)
  1. IRINOTECAN [Suspect]
     Indication: COLORECTAL CANCER METASTATIC
  2. FLUOROURACIL (FLUOROURACIL) [Suspect]
     Indication: COLORECTAL CANCER METASTATIC
  3. BEVACIZUMAB (BEVACIZUMAB) [Suspect]
     Indication: COLORECTAL CANCER METASTATIC

REACTIONS (2)
  - Necrotising fasciitis [None]
  - Septic shock [None]
